FAERS Safety Report 13549876 (Version 1)
Quarter: 2017Q2

REPORT INFORMATION
  Report Type: Spontaneous
  Country: GB (occurrence: GB)
  Receive Date: 20170509
  Receipt Date: 20170509
  Transmission Date: 20170830
  Serious: Yes (Hospitalization)
  Sender: FDA-Public Use
  Company Number: GB-DEXPHARM-20170634

PATIENT
  Age: 78 Year
  Sex: Female

DRUGS (4)
  1. PIROXICAM. [Concomitant]
     Active Substance: PIROXICAM
  2. ALVERINE CITRATE [Concomitant]
     Active Substance: ALVERINE CITRATE
  3. ADCAL-D3 [Concomitant]
     Active Substance: CALCIUM CARBONATE\CHOLECALCIFEROL
  4. OMEPRAZOLE. [Suspect]
     Active Substance: OMEPRAZOLE
     Indication: GASTROOESOPHAGEAL REFLUX DISEASE
     Dosage: DAILY DOSE: 20 MG MILLGRAM(S) EVERY DAYS
     Route: 048

REACTIONS (1)
  - Inappropriate antidiuretic hormone secretion [Recovering/Resolving]
